FAERS Safety Report 21033944 (Version 1)
Quarter: 2022Q3

REPORT INFORMATION
  Report Type: Spontaneous
  Country: CN (occurrence: CN)
  Receive Date: 20220701
  Receipt Date: 20220701
  Transmission Date: 20221027
  Serious: Yes (Hospitalization, Other)
  Sender: FDA-Public Use
  Company Number: CN-PFIZER INC-PV202200011577

PATIENT
  Age: 12 Year
  Sex: Female
  Weight: 21.8 kg

DRUGS (9)
  1. MEDROL [Suspect]
     Active Substance: METHYLPREDNISOLONE
     Indication: Systemic lupus erythematosus
     Dosage: 24 MG, QD
     Route: 048
     Dates: start: 20220519, end: 20220624
  2. MEDROL [Suspect]
     Active Substance: METHYLPREDNISOLONE
     Indication: Lupus nephritis
  3. METHYLPREDNISOLONE SODIUM SUCCINATE [Suspect]
     Active Substance: METHYLPREDNISOLONE SODIUM SUCCINATE
     Indication: Systemic lupus erythematosus
     Dosage: 30 MG, 1X/DAY
     Route: 041
  4. METHYLPREDNISOLONE SODIUM SUCCINATE [Suspect]
     Active Substance: METHYLPREDNISOLONE SODIUM SUCCINATE
     Indication: Lupus nephritis
     Dosage: 0.4 G
     Dates: start: 20191110, end: 20191110
  5. METHYLPREDNISOLONE SODIUM SUCCINATE [Suspect]
     Active Substance: METHYLPREDNISOLONE SODIUM SUCCINATE
     Dosage: 0.4 G
     Dates: start: 20191120, end: 20191120
  6. METHYLPREDNISOLONE [Suspect]
     Active Substance: METHYLPREDNISOLONE
     Indication: Systemic lupus erythematosus
     Dosage: 8MG, QOD
     Route: 048
     Dates: start: 20191105, end: 20200128
  7. METHYLPREDNISOLONE [Suspect]
     Active Substance: METHYLPREDNISOLONE
     Indication: Lupus nephritis
  8. PREDNISONE ACETATE [Suspect]
     Active Substance: PREDNISONE ACETATE
     Indication: Systemic lupus erythematosus
     Dosage: 10MG QOD
     Route: 048
     Dates: start: 20200129, end: 20220518
  9. PREDNISONE ACETATE [Suspect]
     Active Substance: PREDNISONE ACETATE
     Indication: Lupus nephritis

REACTIONS (2)
  - Osteoporosis [Unknown]
  - Condition aggravated [Unknown]

NARRATIVE: CASE EVENT DATE: 20220621
